FAERS Safety Report 10081031 (Version 2)
Quarter: 2014Q2

REPORT INFORMATION
  Report Type: Spontaneous
  Country: US (occurrence: None)
  Receive Date: 20140414
  Receipt Date: 20140522
  Transmission Date: 20141212
  Serious: Yes (Hospitalization)
  Sender: FDA-Public Use
  Company Number: UTC-046872

PATIENT
  Age: 71 Year
  Sex: Female

DRUGS (4)
  1. TYVASO [Suspect]
     Indication: COR PULMONALE CHRONIC
     Dates: start: 20130922
  2. LETAIRIS(AMBRISENTAN) [Concomitant]
  3. WARFARIN(WARFARIN) [Concomitant]
  4. REVATION(SILDENAFIL CITRATE) [Concomitant]

REACTIONS (2)
  - Gastric ulcer [None]
  - Rectal haemorrhage [None]
